FAERS Safety Report 4851538-4 (Version None)
Quarter: 2005Q4

REPORT INFORMATION
  Report Type: 
  Country: None (occurrence: None)
  Receive Date: 20051212
  Receipt Date: 20051130
  Transmission Date: 20060501
  Serious: Yes (Other)
  Sender: FDA-Public Use
  Company Number: IT-ROCHE-426843

PATIENT
  Age: 35 Year
  Sex: Female

DRUGS (5)
  1. SAQUINAVIR [Suspect]
     Indication: HIV INFECTION
     Route: 065
     Dates: end: 20000415
  2. RITONAVIR [Suspect]
     Indication: HIV INFECTION
     Route: 065
     Dates: end: 20000415
  3. STAVUDINE [Suspect]
     Indication: HIV INFECTION
     Route: 065
     Dates: start: 19970715
  4. LAMIVUDINE [Suspect]
     Indication: HIV INFECTION
     Route: 065
     Dates: start: 19970715
  5. INDINAVIR [Suspect]
     Indication: HIV INFECTION
     Route: 065
     Dates: start: 19970715, end: 19980715

REACTIONS (5)
  - BLOOD TRIGLYCERIDES INCREASED [None]
  - FAT TISSUE INCREASED [None]
  - HYPERTROPHY BREAST [None]
  - LIPOATROPHY [None]
  - NEPHROLITHIASIS [None]
